FAERS Safety Report 9302788 (Version 2)
Quarter: 2013Q2

REPORT INFORMATION
  Report Type: Report from Study
  Country: AU (occurrence: None)
  Receive Date: 20130516
  Receipt Date: 20130528
  Transmission Date: 20140414
  Serious: Yes (Other)
  Sender: FDA-Public Use
  Company Number: 2013000107

PATIENT
  Age: 73 Year
  Sex: Female
  Weight: 53 kg

DRUGS (3)
  1. ACEON [Suspect]
     Indication: HYPERTENSION
     Route: 048
     Dates: start: 20110725
  2. BETALOC (METOPROLOL TARTRATE) [Concomitant]
  3. OROXINE ( LEVOTHYROXINE SODIUM) [Concomitant]

REACTIONS (8)
  - Decreased appetite [None]
  - Palpitations [None]
  - Drug ineffective [None]
  - Dizziness [None]
  - Nausea [None]
  - Vertigo [None]
  - Sensation of heaviness [None]
  - Hypertension [None]
